FAERS Safety Report 18397639 (Version 1)
Quarter: 2020Q4

REPORT INFORMATION
  Report Type: Spontaneous
  Country: US (occurrence: US)
  Receive Date: 20201018
  Receipt Date: 20201018
  Transmission Date: 20210114
  Serious: No
  Sender: FDA-Public Use
  Company Number: None

PATIENT
  Age: 37 Year
  Sex: Male
  Weight: 123.75 kg

DRUGS (1)
  1. JARDIANCE [Suspect]
     Active Substance: EMPAGLIFLOZIN
     Indication: TYPE 2 DIABETES MELLITUS
     Dosage: QUANTITY:1 CAPSULE(S);?
     Route: 048
     Dates: start: 20201013, end: 20201017

REACTIONS (4)
  - Depressed mood [None]
  - Fatigue [None]
  - Thirst [None]
  - Dizziness [None]

NARRATIVE: CASE EVENT DATE: 20201013
